FAERS Safety Report 9802352 (Version 3)
Quarter: 2014Q2

REPORT INFORMATION
  Report Type: Report from Study
  Country: JP (occurrence: JP)
  Receive Date: 20140107
  Receipt Date: 20140630
  Transmission Date: 20141212
  Serious: Yes (Other)
  Sender: FDA-Public Use
  Company Number: JP-GILEAD-2013-0074644

PATIENT
  Age: 74 Year
  Sex: Female
  Weight: 51 kg

DRUGS (7)
  1. AMBRISENTAN [Suspect]
     Indication: PULMONARY ARTERIAL HYPERTENSION
     Dosage: 5 MG, QD
     Route: 048
     Dates: start: 20120509, end: 20130213
  2. AMLODIN [Concomitant]
     Dosage: UNK
     Route: 048
  3. PARIET [Concomitant]
     Dosage: UNK
     Route: 048
  4. URSO                               /00465701/ [Concomitant]
     Dosage: UNK
     Route: 048
  5. ACTOS [Concomitant]
     Dosage: UNK
     Route: 048
  6. AMARYL [Concomitant]
     Dosage: UNK
     Route: 048
  7. CALONAL [Concomitant]
     Dosage: UNK
     Route: 048
     Dates: end: 20130404

REACTIONS (3)
  - Leukopenia [Recovered/Resolved]
  - Thrombocytopenia [Recovered/Resolved]
  - Anaemia [Recovered/Resolved]
